FAERS Safety Report 8881209 (Version 1)
Quarter: 2012Q4

REPORT INFORMATION
  Report Type: Report from Study
  Country: US (occurrence: US)
  Receive Date: 20121031
  Receipt Date: 20121031
  Transmission Date: 20130627
  Serious: Yes (Hospitalization)
  Sender: FDA-Public Use
  Company Number: US-ROCHE-1147894

PATIENT
  Age: 61 Year
  Sex: Female
  Weight: 102.05 kg

DRUGS (3)
  1. TRASTUZUMAB [Suspect]
     Indication: BREAST CANCER
     Route: 042
     Dates: start: 20120919
  2. CYCLOPHOSPHAMIDE [Suspect]
     Indication: BREAST CANCER
     Dosage: 30 mins on day 1
     Route: 042
     Dates: start: 20120919
  3. DOCETAXEL [Suspect]
     Indication: BREAST CANCER
     Dosage: 60 minutes on day 1
     Route: 042
     Dates: start: 20120919

REACTIONS (1)
  - Sepsis [Recovering/Resolving]
